FAERS Safety Report 11068046 (Version 1)
Quarter: 2015Q2

REPORT INFORMATION
  Report Type: Spontaneous
  Country: CZ (occurrence: CZ)
  Receive Date: 20150427
  Receipt Date: 20150427
  Transmission Date: 20150821
  Serious: Yes (Other)
  Sender: FDA-Public Use
  Company Number: CZ-ROCHE-1569079

PATIENT
  Age: 54 Year
  Sex: Female
  Weight: 87 kg

DRUGS (2)
  1. ROACTEMRA [Suspect]
     Active Substance: TOCILIZUMAB
     Indication: RHEUMATOID ARTHRITIS
     Dosage: 20 MG/ML?MOST RECENT DOSE PRIOR TO AE ON : 05/MAR/2015
     Route: 041
     Dates: start: 20120112
  2. MEDROL [Concomitant]
     Active Substance: METHYLPREDNISOLONE
     Indication: RHEUMATOID ARTHRITIS
     Route: 048
     Dates: start: 20040501, end: 20150416

REACTIONS (1)
  - Mucinous breast carcinoma [Unknown]

NARRATIVE: CASE EVENT DATE: 20150319
